FAERS Safety Report 12636807 (Version 1)
Quarter: 2016Q3

REPORT INFORMATION
  Report Type: Report from Study
  Country: AU (occurrence: AU)
  Receive Date: 20160809
  Receipt Date: 20160809
  Transmission Date: 20161109
  Serious: Yes (Hospitalization)
  Sender: FDA-Public Use
  Company Number: AU-PFIZER INC-2016362912

PATIENT
  Age: 63 Year
  Sex: Female

DRUGS (19)
  1. GLIPIZIDE. [Concomitant]
     Active Substance: GLIPIZIDE
     Dosage: 15 MG, (5 MG, 3 IN 1 D)
     Route: 048
     Dates: start: 201510
  2. FLUOROURACIL. [Suspect]
     Active Substance: FLUOROURACIL
     Dosage: 400 MG/M2, CYCLIC (DAY 1 OF EACH 14-DAY CYCLE)
     Route: 040
     Dates: start: 20150916, end: 20151111
  3. GLIPIZIDE. [Concomitant]
     Active Substance: GLIPIZIDE
     Indication: DIABETES MELLITUS
     Dosage: 6 MG (2 MG, 3 IN 1 D)
     Route: 048
     Dates: start: 2001, end: 201510
  4. ATORVASTATIN [Concomitant]
     Active Substance: ATORVASTATIN
     Dosage: 40 MG (40 MG, 1 IN 1 D)
     Route: 048
     Dates: start: 2001, end: 201510
  5. IRINOTECAN HCL [Suspect]
     Active Substance: IRINOTECAN HYDROCHLORIDE
     Indication: COLORECTAL CANCER METASTATIC
     Dosage: 180 MG/M2, CYCLIC (DAY 1 OF EACH 14-DAY CYCLE)
     Route: 042
     Dates: start: 20150916, end: 20160329
  6. LEUCOVORIN. [Concomitant]
     Active Substance: LEUCOVORIN
     Indication: COLORECTAL CANCER METASTATIC
     Dosage: 400 MG/M2, DAY 1 OF EACH 14-DAY CYCLE
     Route: 042
     Dates: start: 20150916, end: 20160329
  7. ATORVASTATIN [Concomitant]
     Active Substance: ATORVASTATIN
     Indication: HYPERCHOLESTEROLAEMIA
     Dosage: 80 MG (80 MG,1 IN 1 D)
     Route: 048
     Dates: start: 201510
  8. NOVORAPID [Concomitant]
     Active Substance: INSULIN ASPART
     Indication: HYPERGLYCAEMIA
     Dosage: 3-5 IU; SLIDING SCALE
     Route: 058
     Dates: start: 20151204
  9. ENDONE [Concomitant]
     Active Substance: OXYCODONE HYDROCHLORIDE
     Indication: ABDOMINAL PAIN UPPER
     Dosage: 5-10 MG (AS REQUIRED)
     Route: 048
     Dates: start: 20160426
  10. FLUOROURACIL. [Suspect]
     Active Substance: FLUOROURACIL
     Dosage: 2400 MG/M2, CYCLIC (DAY 1 OF EACH 14-DAY CYCLE)
     Route: 042
     Dates: start: 20150916, end: 20160331
  11. DAPAGLIFLOZIN [Concomitant]
     Active Substance: DAPAGLIFLOZIN
     Indication: DIABETES MELLITUS
     Dosage: 10 MCG (10 MCG,1 IN 1 D)
     Route: 048
     Dates: start: 201507
  12. ESOMEPRAZOLE [Concomitant]
     Active Substance: ESOMEPRAZOLE
     Indication: GASTROOESOPHAGEAL REFLUX DISEASE
     Dosage: 20 MG (20 MG,1 IN 1 D)
     Route: 048
     Dates: start: 20160203
  13. METFORMIN [Concomitant]
     Active Substance: METFORMIN HYDROCHLORIDE
     Indication: DIABETES MELLITUS
     Dosage: (1 GM, 2 IN 1 D)
     Route: 048
     Dates: start: 2001, end: 20151204
  14. VILDAGLIPTIN [Concomitant]
     Active Substance: VILDAGLIPTIN
     Indication: DIABETES MELLITUS
     Dosage: 100 MG (50 MG,2 IN 1 D)
     Route: 048
     Dates: start: 2001, end: 20151204
  15. ASPIRIN. [Concomitant]
     Active Substance: ASPIRIN
     Indication: PROPHYLAXIS
     Dosage: 100 MG (100 MG,1 IN 1 D)
     Route: 048
     Dates: start: 2001
  16. LANTUS [Concomitant]
     Active Substance: INSULIN GLARGINE
     Indication: HYPERGLYCAEMIA
     Dosage: 15 IU, CYCLIC (DAYS 1-3 OF EACH CHEMOTHERAPY CYCLE)
     Route: 058
     Dates: start: 20151204
  17. SOMAC [Concomitant]
     Active Substance: PANTOPRAZOLE SODIUM
     Indication: GASTROOESOPHAGEAL REFLUX DISEASE
     Dosage: 40 MG (40 MG, 1 IN 1 D)
     Route: 048
     Dates: start: 20160201, end: 20160203
  18. ABT-888 [Suspect]
     Active Substance: VELIPARIB
     Indication: COLORECTAL CANCER METASTATIC
     Dosage: BID DAY -2 THROUGH DAY 5 OF EACH 14-DAY CYCLE
     Route: 048
     Dates: start: 20150914, end: 20160411
  19. BEVACIZUMAB [Suspect]
     Active Substance: BEVACIZUMAB
     Indication: COLORECTAL CANCER METASTATIC
     Dosage: 5 MG/KG, IMMEDIATELY PRECEDING FOLFIRI
     Route: 042
     Dates: start: 20150920, end: 20160329

REACTIONS (1)
  - Liver function test abnormal [Unknown]

NARRATIVE: CASE EVENT DATE: 20160329
